FAERS Safety Report 6128338-0 (Version None)
Quarter: 2009Q1

REPORT INFORMATION
  Report Type: 
  Country: None (occurrence: None)
  Receive Date: 20090323
  Receipt Date: 20090317
  Transmission Date: 20090719
  Serious: Yes (Other)
  Sender: FDA-Public Use
  Company Number: B0561302A

PATIENT
  Age: 14 Year
  Sex: Male

DRUGS (2)
  1. RELENZA [Suspect]
     Indication: INFLUENZA
     Dosage: 10MG TWICE PER DAY
     Route: 055
     Dates: start: 20090209, end: 20090214
  2. CALONAL [Concomitant]

REACTIONS (8)
  - ABNORMAL BEHAVIOUR [None]
  - AGITATION [None]
  - ALTERED STATE OF CONSCIOUSNESS [None]
  - ELEVATED MOOD [None]
  - FALL [None]
  - MEMORY IMPAIRMENT [None]
  - TENSION [None]
  - TOOTH INJURY [None]
